FAERS Safety Report 7631244-3 (Version None)
Quarter: 2011Q3

REPORT INFORMATION
  Report Type: 
  Country: None (occurrence: None)
  Receive Date: 20110715
  Receipt Date: 20110630
  Transmission Date: 20111222
  Serious: Yes (Hospitalization)
  Sender: FDA-Public Use
  Company Number: BENZ20110001

PATIENT
  Age: 35 Year
  Sex: Female

DRUGS (7)
  1. LITHIUM CARBONATE [Suspect]
     Indication: PRODUCT USED FOR UNKNOWN INDICATION
     Dosage: 1200 MG, 2 IN 1 D, ORAL
     Route: 048
  2. HALOPERIDOL [Suspect]
     Indication: AGITATION
     Dosage: 5 MG, AS REQUIRED
  3. VALPROIC ACID [Suspect]
     Indication: PRODUCT USED FOR UNKNOWN INDICATION
     Dosage: 1500 MG, 1 IN 1 D, ORAL
     Route: 048
  4. OLANZAPINE [Suspect]
     Indication: PRODUCT USED FOR UNKNOWN INDICATION
     Dosage: 40 MG, 2 IN 1 D, ORAL
     Route: 048
  5. PERPHENAZINE [Suspect]
     Indication: PRODUCT USED FOR UNKNOWN INDICATION
     Dosage: 48 MG, 3 IN 1 D, ORAL
     Route: 048
  6. BENZTROPINE MESYLATE [Suspect]
     Indication: PROPHYLAXIS
     Dosage: 3 MG, 2 IN 1 D, ORAL, 1 MG, 2 IN 1 D, ORAL
     Route: 048
  7. RISPERIDONE [Suspect]
     Indication: PRODUCT USED FOR UNKNOWN INDICATION
     Dosage: 12 MG, 3 IN 1 D, ORAL
     Route: 048

REACTIONS (1)
  - ILEUS PARALYTIC [None]
